FAERS Safety Report 19239314 (Version 2)
Quarter: 2021Q3

REPORT INFORMATION
  Report Type: Spontaneous
  Country: US (occurrence: US)
  Receive Date: 20210511
  Receipt Date: 20210909
  Transmission Date: 20211014
  Serious: Yes (Other)
  Sender: FDA-Public Use
  Company Number: US-SUN PHARMACEUTICAL INDUSTRIES LTD-2021R1-295256

PATIENT
  Age: 25 Year
  Sex: Female

DRUGS (2)
  1. NIMODIPINE. [Suspect]
     Active Substance: NIMODIPINE
     Indication: VASOCONSTRICTION
     Dosage: 60 MILLIGRAM, Q4H
     Route: 048
  2. VERAPAMIL [Suspect]
     Active Substance: VERAPAMIL HYDROCHLORIDE
     Indication: VASOCONSTRICTION
     Dosage: UNK (ARTERIAL)
     Route: 065

REACTIONS (1)
  - Condition aggravated [Unknown]
